FAERS Safety Report 6168507-7 (Version None)
Quarter: 2009Q2

REPORT INFORMATION
  Report Type: 
  Country: None (occurrence: None)
  Receive Date: 20090427
  Receipt Date: 20090417
  Transmission Date: 20091009
  Serious: Yes (Hospitalization)
  Sender: FDA-Public Use
  Company Number: A0780404A

PATIENT
  Age: 54 Year
  Sex: Female
  Weight: 109.1 kg

DRUGS (20)
  1. AVANDIA [Suspect]
     Indication: DIABETES MELLITUS
     Dosage: 4MG PER DAY
     Route: 048
     Dates: start: 20011028, end: 20070720
  2. INSULIN [Concomitant]
  3. TOPROL-XL [Concomitant]
  4. LASIX [Concomitant]
  5. TRICOR [Concomitant]
  6. LIPITOR [Concomitant]
  7. ATIVAN [Concomitant]
  8. CITALOPRAM HYDROBROMIDE [Concomitant]
  9. CELEXA [Concomitant]
  10. CYCLOBENZAPRINE [Concomitant]
  11. ZOLPIDEM TARTRATE [Concomitant]
  12. LISINOPRIL [Concomitant]
  13. PHENYTOIN [Concomitant]
  14. OMNICEF [Concomitant]
  15. NEURONTIN [Concomitant]
  16. NIFEDIPINE [Concomitant]
  17. QUININE [Concomitant]
  18. KLOR-CON [Concomitant]
  19. ZITHROMAX [Concomitant]
  20. ESTAZOLAM [Concomitant]

REACTIONS (1)
  - MYOCARDIAL INFARCTION [None]
